FAERS Safety Report 13744835 (Version 3)
Quarter: 2017Q4

REPORT INFORMATION
  Report Type: Spontaneous
  Country: US (occurrence: US)
  Receive Date: 20170712
  Receipt Date: 20171208
  Transmission Date: 20180320
  Serious: No
  Sender: FDA-Public Use
  Company Number: US-PFIZER INC-2017298663

PATIENT
  Age: 60 Year
  Sex: Female

DRUGS (2)
  1. XELJANZ [Suspect]
     Active Substance: TOFACITINIB CITRATE
     Indication: RHEUMATOID ARTHRITIS
     Dosage: 5 MG, 2X/DAY
     Dates: start: 20170609
  2. XELJANZ [Suspect]
     Active Substance: TOFACITINIB CITRATE
     Indication: MULTIPLE SCLEROSIS
     Dosage: 5 MG, 2X/DAY
     Dates: start: 20170531

REACTIONS (5)
  - Headache [Unknown]
  - Gastrooesophageal reflux disease [Unknown]
  - Drug ineffective [Unknown]
  - Condition aggravated [Unknown]
  - Vertigo [Unknown]

NARRATIVE: CASE EVENT DATE: 20170630
